FAERS Safety Report 10077271 (Version 2)
Quarter: 2014Q2

REPORT INFORMATION
  Report Type: Spontaneous
  Country: US (occurrence: US)
  Receive Date: 20140414
  Receipt Date: 20140414
  Transmission Date: 20141212
  Serious: No
  Sender: FDA-Public Use
  Company Number: US-BANPHARM-20131202

PATIENT
  Age: 86 Year
  Sex: Female
  Weight: 57.15 kg

DRUGS (8)
  1. ALEVE LIQUID GELS 220 MG [Suspect]
     Dosage: 2 DF, ONCE,
     Route: 048
     Dates: start: 20130413, end: 20130413
  2. TYLENOL [Concomitant]
  3. LOW DOSE ASPIRIN REGIMEN BAYER [Concomitant]
     Indication: CARDIOVASCULAR EVENT PROPHYLAXIS
  4. ONE-A-DAY VITAMINS [Concomitant]
  5. CALCIUM [Concomitant]
  6. FISH OIL [Concomitant]
  7. OCUVITE [Concomitant]
  8. OSTEO BIFLEX [Concomitant]

REACTIONS (1)
  - Foreign body [Recovered/Resolved]
